FAERS Safety Report 13511298 (Version 2)
Quarter: 2018Q3

REPORT INFORMATION
  Report Type: Spontaneous
  Country: US (occurrence: US)
  Receive Date: 20170503
  Receipt Date: 20180827
  Transmission Date: 20181010
  Serious: No
  Sender: FDA-Public Use
  Company Number: US-BRISTOL-MYERS SQUIBB COMPANY-BMS-2017-034260

PATIENT
  Sex: Female
  Weight: 93.44 kg

DRUGS (1)
  1. ORENCIA [Suspect]
     Active Substance: ABATACEPT
     Indication: RHEUMATOID ARTHRITIS
     Dosage: 125 MG, QWK
     Route: 058

REACTIONS (7)
  - Back pain [Unknown]
  - Joint swelling [Not Recovered/Not Resolved]
  - Personality change [Unknown]
  - Neck pain [Unknown]
  - Gait disturbance [Unknown]
  - Arthralgia [Unknown]
  - Musculoskeletal pain [Unknown]
